FAERS Safety Report 8970718 (Version 1)
Quarter: 2012Q4

REPORT INFORMATION
  Report Type: 
  Country: US (occurrence: US)
  Receive Date: 20121218
  Receipt Date: 20121218
  Transmission Date: 20130627
  Serious: No
  Sender: FDA-Public Use
  Company Number: US-BRISTOL-MYERS SQUIBB COMPANY-16515397

PATIENT
  Age: 1 None
  Sex: Male

DRUGS (3)
  1. ABILIFY [Suspect]
     Indication: INTERMITTENT EXPLOSIVE DISORDER
     Dosage: Last dose :Jan12, Dose increased to 7.5 mg
     Route: 048
     Dates: start: 20101208, end: 20120206
  2. ZOLOFT [Concomitant]
     Dates: start: 20120206
  3. RISPERDAL [Concomitant]

REACTIONS (1)
  - Weight increased [Unknown]
